FAERS Safety Report 7501884-0 (Version None)
Quarter: 2011Q2

REPORT INFORMATION
  Report Type: 
  Country: None (occurrence: None)
  Receive Date: 20110523
  Receipt Date: 20110523
  Transmission Date: 20111010
  Serious: Yes (Life-Threatening, Hospitalization, Disabling, Other)
  Sender: FDA-Public Use
  Company Number: None

PATIENT
  Age: 55 Year
  Sex: Female
  Weight: 35.3806 kg

DRUGS (1)
  1. PROMETHAZINE [Suspect]
     Indication: URINARY TRACT INFECTION
     Dosage: 25-50MGS 4 TIMES A DAY ORAL
     Route: 048
     Dates: start: 20110201

REACTIONS (1)
  - DRUG INTERACTION [None]
